FAERS Safety Report 14928881 (Version 7)
Quarter: 2018Q3

REPORT INFORMATION
  Report Type: Report from Study
  Country: JP (occurrence: JP)
  Receive Date: 20180523
  Receipt Date: 20180926
  Transmission Date: 20181010
  Serious: Yes (Death, Other)
  Sender: FDA-Public Use
  Company Number: JP-ASTRAZENECA-2017SE17664

PATIENT
  Age: 30751 Day
  Sex: Female
  Weight: 42 kg

DRUGS (60)
  1. BIOFERMIN [Concomitant]
     Active Substance: BACILLUS SUBTILIS\LACTOBACILLUS ACIDOPHILUS\STREPTOCOCCUS FAECAIS
     Indication: DIARRHOEA
     Dosage: AFTER EVERY MEAL, DOSE UNKNOWN
     Route: 048
  2. PL [Concomitant]
     Active Substance: ACETAMINOPHEN\CAFFEINE\PROMETHAZINE\SALICYLAMIDE
     Indication: NASOPHARYNGITIS
     Dosage: AFTER EVERY MEAL, DOSE UNKNOWN
     Route: 048
     Dates: start: 20180201, end: 20180206
  3. RABEPRAZOLE [Concomitant]
     Active Substance: RABEPRAZOLE
     Dosage: BEFORE BREAKFAST, DOSE UNKNOWN
     Route: 048
     Dates: end: 20170201
  4. MOSAPRIDE CITRATE [Concomitant]
     Active Substance: MOSAPRIDE CITRATE
     Indication: GASTRITIS
     Dosage: AFTER BREAKFAST AND EVENING MEAL, DOSE UNKNOWN
     Route: 048
     Dates: start: 20170201
  5. GASMOTIN [Concomitant]
     Active Substance: MOSAPRIDE CITRATE
     Dosage: AFTER BREAKFAST AND EVENING MEAL, DOSE UNKNOWN
     Route: 048
     Dates: start: 20170202
  6. ALTAT [Concomitant]
     Active Substance: ROXATIDINE ACETATE HYDROCHLORIDE
     Dosage: DOSE UNKNOWN
     Route: 042
  7. CIPROXAN [Concomitant]
     Active Substance: CIPROFLOXACIN
     Indication: PNEUMONIA
     Dosage: DOSE UNKNOWN
     Route: 042
  8. MORPHINE HYDROCHLORIDE [Concomitant]
     Active Substance: MORPHINE HYDROCHLORIDE
     Indication: DYSPNOEA
     Dosage: DOSE UNKNOWN
     Route: 042
  9. TAGRISSO [Suspect]
     Active Substance: OSIMERTINIB
     Indication: NON-SMALL CELL LUNG CANCER
     Route: 048
     Dates: start: 20170707, end: 20170912
  10. NEXIUM [Concomitant]
     Active Substance: ESOMEPRAZOLE MAGNESIUM
     Dosage: 20 MG DAILY BEFORE BREAKFAST, DOSE UNKNOWN
     Route: 048
     Dates: start: 20170202
  11. FOSAMAC 35MG [Concomitant]
     Indication: OSTEOPOROSIS
     Dosage: ON AWAKENING, DOSE UNKNOWN
     Route: 048
     Dates: end: 20170527
  12. AMLODIN [Concomitant]
     Active Substance: AMLODIPINE BESYLATE
     Dosage: AFTER BREAKFAST, DOSE UNKNOWN
     Route: 048
     Dates: start: 20170113, end: 20170322
  13. NEOMALLERMIN [Concomitant]
     Active Substance: DEXCHLORPHENIRAMINE MALEATE
     Dosage: AFTER EVENING MEAL, DOSE UNKNOWN
     Route: 048
  14. XYZAL [Concomitant]
     Active Substance: LEVOCETIRIZINE DIHYDROCHLORIDE
     Indication: RASH
     Dosage: AFTER EVENING MEAL, DOSE UNKNOWN
     Route: 048
  15. PROTECADIN OD [Concomitant]
     Active Substance: LAFUTIDINE
     Indication: DIARRHOEA
     Dosage: AFTER EVENING MEAL, DOSE UNKNOWN
     Route: 048
     Dates: start: 20170228
  16. CEFTRIAXONE. [Concomitant]
     Active Substance: CEFTRIAXONE
     Indication: PNEUMONIA
     Dosage: DOSE UNKNOWN
     Route: 042
  17. AMLODIPINE [Concomitant]
     Active Substance: AMLODIPINE BESYLATE
     Indication: HYPERTENSION
     Dosage: AFTER BREAKFAST, DOSE UNKNOWN
     Route: 048
     Dates: end: 20170112
  18. THYRADIN S [Concomitant]
     Active Substance: LEVOTHYROXINE SODIUM
     Indication: HYPOTHYROIDISM
     Dosage: AFTER BREAKFAST,3?6 TABLETS/DAY
     Route: 048
  19. TAKEPRON [Concomitant]
     Active Substance: LANSOPRAZOLE
     Dosage: AFTER BREAKFAST, DOSE UNKNOWN
     Route: 048
     Dates: start: 20170307, end: 20170323
  20. LOXOPROFEN SODIUM [Concomitant]
     Active Substance: LOXOPROFEN SODIUM
     Indication: BACK PAIN
     Dosage: AS REQUIRED FOR PAIN, DOSE UNKNOWN
     Route: 048
  21. TAGRISSO [Suspect]
     Active Substance: OSIMERTINIB
     Indication: NON-SMALL CELL LUNG CANCER
     Route: 048
     Dates: start: 20170110, end: 20170214
  22. TAGRISSO [Suspect]
     Active Substance: OSIMERTINIB
     Indication: NON-SMALL CELL LUNG CANCER
     Route: 048
     Dates: start: 20171027, end: 20180209
  23. HIRUDOID [Concomitant]
     Active Substance: GLYCOSAMINOGLYCANS
     Indication: RASH
     Dosage: DOSE UNKNOWN
     Route: 062
  24. MAGNESIUM OXIDE. [Concomitant]
     Active Substance: MAGNESIUM OXIDE
     Indication: CONSTIPATION
     Dosage: BEFORE SLEEP, 660?1320 MG/DAY
     Route: 048
     Dates: start: 20170112
  25. ADOAIR [Concomitant]
     Active Substance: FLUTICASONE PROPIONATE\SALMETEROL XINAFOATE
     Indication: ASTHMA
     Route: 055
     Dates: start: 20170113
  26. LOCOID [Concomitant]
     Active Substance: HYDROCORTISONE BUTYRATE
     Indication: RASH
     Dosage: DOSE UNKNOWN
     Route: 062
  27. CARBOCISTEINE [Concomitant]
     Active Substance: CARBOCYSTEINE
     Indication: PRODUCTIVE COUGH
     Dosage: AFTER EACH MEAL, DOSE UNKNOWN
     Route: 048
     Dates: start: 20170407
  28. SUNRYTHM [Concomitant]
     Active Substance: PILSICAINIDE HYDROCHLORIDE
     Indication: ATRIAL FIBRILLATION
     Dosage: FOR PALPITATION ATTACK, DOSE UNKNOWN
     Route: 048
  29. MAGTECT [Concomitant]
     Indication: ABDOMINAL PAIN UPPER
     Dosage: BETWEEN MEALS, DOSE UNKNOWN
     Route: 048
  30. TAGRISSO [Suspect]
     Active Substance: OSIMERTINIB
     Indication: NON-SMALL CELL LUNG CANCER
     Route: 048
     Dates: start: 20170223
  31. TAGRISSO [Suspect]
     Active Substance: OSIMERTINIB
     Indication: NON-SMALL CELL LUNG CANCER
     Route: 048
     Dates: start: 20170623, end: 20170706
  32. RINDERON A [Concomitant]
     Active Substance: BETAMETHASONE SODIUM PHOSPHATE\NEOMYCIN SULFATE
     Indication: CONJUNCTIVITIS
     Dosage: DOSE UNKNOWN
     Route: 047
  33. MINOMYCIN [Concomitant]
     Active Substance: MINOCYCLINE HYDROCHLORIDE
     Indication: RASH
     Dosage: AFTER BREAKFAST AND EVENING MEAL, DOSE UNKNOWN
     Route: 048
  34. CYTOTEC [Concomitant]
     Active Substance: MISOPROSTOL
     Indication: BACK PAIN
     Dosage: AS REQUIRED FOR PAIN, DOSE UNKNOWN
     Route: 048
  35. FLUOROMETHOLONE. [Concomitant]
     Active Substance: FLUOROMETHOLONE
     Indication: CONJUNCTIVITIS
     Dosage: DOSE UNKNOWN
     Route: 047
  36. ELIQUIS [Concomitant]
     Active Substance: APIXABAN
     Indication: ATRIAL FIBRILLATION
     Dosage: AFTER BREAKFAST AND EVENING MEAL, DOSE UNKNOWN
     Route: 048
  37. OMEPRAZOLE. [Concomitant]
     Active Substance: OMEPRAZOLE
     Dosage: DOSE UNKNOWN
     Route: 042
  38. TAGRISSO [Suspect]
     Active Substance: OSIMERTINIB
     Indication: NON-SMALL CELL LUNG CANCER
     Route: 048
     Dates: start: 20170913, end: 20171026
  39. ANTEBATE [Concomitant]
     Active Substance: BETAMETHASONE DIPROPIONATE
     Indication: RASH
     Dosage: DOSE UNKNOWN
     Route: 062
  40. SIGMART [Concomitant]
     Active Substance: NICORANDIL
     Indication: ANGINA PECTORIS
     Dosage: AFTER BREAKFAST AND EVENING MEAL, DOSE UNKNOWN
     Route: 048
     Dates: end: 20170706
  41. KENALOG [Concomitant]
     Active Substance: TRIAMCINOLONE ACETONIDE
     Indication: STOMATITIS
     Dosage: APPLIED 2 OR 3 TIMES, DOSE UNKNOWN
     Route: 062
     Dates: start: 20170511
  42. MUCOSTA [Concomitant]
     Active Substance: REBAMIPIDE
     Indication: CONJUNCTIVITIS
     Dosage: DOSE UNKNOWN
     Route: 047
  43. MUCOSOLVAN L [Concomitant]
     Active Substance: AMBROXOL HYDROCHLORIDE
     Indication: PRODUCTIVE COUGH
     Dosage: AFTER BREAKFAST, DOSE UNKNOWN
     Route: 048
     Dates: start: 20170417
  44. ZOPICLONE [Concomitant]
     Active Substance: ZOPICLONE
     Indication: INSOMNIA
     Dosage: BEFORE SLEEP, DOSE UNKNOWN
     Route: 048
  45. LULICON:CREAM [Concomitant]
     Indication: TINEA PEDIS
     Dosage: DOSE UNKNOWN
     Route: 062
  46. CEREKINON [Concomitant]
     Active Substance: TRIMEBUTINE
     Indication: DIARRHOEA
     Dosage: AFTER BREAKFAST AND EVENING MEAL, DOSE UNKNOWN
     Route: 048
  47. CALONAL [Concomitant]
     Active Substance: ACETAMINOPHEN
     Indication: CHEST PAIN
     Dosage: AFTER EACH MEAL, DOSE UNKNOWN
     Route: 048
  48. VASOLAN [Concomitant]
     Active Substance: VERAPAMIL HYDROCHLORIDE
     Indication: ATRIAL FIBRILLATION
     Dosage: DOSE UNKNOWN
     Route: 042
  49. TAGRISSO [Suspect]
     Active Substance: OSIMERTINIB
     Indication: NON-SMALL CELL LUNG CANCER
     Route: 048
     Dates: start: 20170317, end: 20170525
  50. PHELLOBERIN [Concomitant]
     Active Substance: BERBERINE\GERANIUM
     Indication: DIARRHOEA
     Dosage: AFTER EVERY MEAL, DOSE UNKNOWN
     Route: 048
  51. ANTEBATE [Concomitant]
     Active Substance: BETAMETHASONE DIPROPIONATE
     Indication: RASH
     Dosage: DOSE UNKNOWN
     Route: 062
  52. EURAX [Concomitant]
     Active Substance: CROTAMITON
     Indication: DRUG ERUPTION
     Dosage: 1 OR 2 TIMES, DOSE UNKNOWN
     Route: 062
  53. CRAVIT [Concomitant]
     Active Substance: LEVOFLOXACIN
     Indication: CONJUNCTIVITIS
     Dosage: DOSE UNKNOWN
     Route: 047
  54. AFTACH [Concomitant]
     Active Substance: TRIAMCINOLONE
     Indication: APHTHOUS ULCER
     Dosage: ONE OR TWO PIECES, DOSE UNKNOWN
     Route: 048
  55. FUROSEMIDE. [Concomitant]
     Active Substance: FUROSEMIDE
     Indication: OLIGURIA
     Dosage: DOSE UNKNOWN
     Route: 042
  56. KERATINAMIN [Concomitant]
     Active Substance: UREA
     Indication: RASH
     Dosage: SEVERAL TIMES, DOSE UNKNOWN
     Route: 062
  57. POSTERISAN [Concomitant]
     Active Substance: LIDOCAINE
     Indication: HAEMORRHOIDS
     Dosage: INSERTED INTO THE ANUS OR APPLIED, DOSE UNKNOWN
     Route: 062
     Dates: start: 20170221
  58. ALENDRONATE [Concomitant]
     Active Substance: ALENDRONATE SODIUM
     Indication: CONJUNCTIVITIS
     Dosage: ON AWAKENING, DOSE UNKNOWN
     Route: 048
  59. LOPEMIN [Concomitant]
     Active Substance: LOPERAMIDE HYDROCHLORIDE
     Indication: DIARRHOEA
     Dosage: AFTER BREAKFAST AND EVENING MEAL, DOSE UNKNOWN
     Route: 048
  60. SOLU?MEDROL [Concomitant]
     Active Substance: METHYLPREDNISOLONE SODIUM SUCCINATE
     Indication: PNEUMONIA
     Dosage: DOSE UNKNOWN
     Route: 042

REACTIONS (13)
  - Conjunctivitis [Not Recovered/Not Resolved]
  - Eczema [Not Recovered/Not Resolved]
  - Atrial fibrillation [Recovered/Resolved]
  - Keratitis [Not Recovered/Not Resolved]
  - Paronychia [Not Recovered/Not Resolved]
  - Dry skin [Not Recovered/Not Resolved]
  - Aphthous ulcer [Recovering/Resolving]
  - Interstitial lung disease [Fatal]
  - Gastrointestinal disorder [Not Recovered/Not Resolved]
  - Drug eruption [Recovered/Resolved]
  - Decreased appetite [Not Recovered/Not Resolved]
  - Stomatitis [Recovering/Resolving]
  - Diarrhoea [Not Recovered/Not Resolved]

NARRATIVE: CASE EVENT DATE: 20170112
